FAERS Safety Report 7312793-4 (Version None)
Quarter: 2011Q1

REPORT INFORMATION
  Report Type: 
  Country: None (occurrence: None)
  Receive Date: 20110224
  Receipt Date: 20100518
  Transmission Date: 20110831
  Serious: No
  Sender: FDA-Public Use
  Company Number: US-MYLANLABS-2010S1008971

PATIENT
  Sex: Female

DRUGS (5)
  1. METOPROLOL TARTRATE [Suspect]
     Indication: ATRIAL FIBRILLATION
     Route: 048
  2. METOPROLOL TARTRATE [Suspect]
     Route: 048
  3. AVAPRO [Concomitant]
     Route: 048
  4. COUMADIN [Concomitant]
     Route: 048
     Dates: start: 20100517
  5. COUMADIN [Concomitant]
     Indication: ANTICOAGULANT THERAPY
     Route: 048
     Dates: start: 20070101, end: 20100512

REACTIONS (1)
  - PROTHROMBIN LEVEL INCREASED [None]
